FAERS Safety Report 5452723-3 (Version None)
Quarter: 2007Q3

REPORT INFORMATION
  Report Type: 
  Country: None (occurrence: None)
  Receive Date: 20070914
  Receipt Date: 20070904
  Transmission Date: 20080115
  Serious: Yes (Other)
  Sender: FDA-Public Use
  Company Number: GB-JNJFOC-20070900986

PATIENT
  Age: 42 Year
  Sex: Female
  Weight: 49 kg

DRUGS (10)
  1. REMICADE [Suspect]
     Indication: CROHN'S DISEASE
     Route: 042
  2. AQUEOUS CREAM [Concomitant]
     Route: 061
  3. AZATHIOPRINE [Concomitant]
  4. CO-CODAMOL [Concomitant]
  5. DIPROBASE [Concomitant]
     Route: 061
  6. FUCIBET [Concomitant]
     Route: 061
  7. LANSOPRAZOLE [Concomitant]
     Route: 048
  8. PARACETAMOL [Concomitant]
  9. PREDNISOLONE [Concomitant]
  10. TRAMADOL HCL [Concomitant]

REACTIONS (1)
  - CHORIORETINOPATHY [None]
